FAERS Safety Report 5875520-3 (Version None)
Quarter: 2008Q3

REPORT INFORMATION
  Report Type: 
  Country: None (occurrence: None)
  Receive Date: 20080909
  Receipt Date: 20080826
  Transmission Date: 20090109
  Serious: Yes (Hospitalization)
  Sender: FDA-Public Use
  Company Number: US-ELI_LILLY_AND_COMPANY-US200807000578

PATIENT
  Sex: Male
  Weight: 93 kg

DRUGS (18)
  1. BYETTA [Suspect]
     Indication: TYPE 2 DIABETES MELLITUS
     Dosage: UNK, UNK
     Dates: start: 20080214, end: 20080513
  2. AMANTADINE HCL [Concomitant]
     Dosage: 100 MG, DAILY (1/D)
     Route: 048
  3. ANDROGEL [Concomitant]
     Dates: start: 20080214
  4. AVODART [Concomitant]
     Indication: BENIGN PROSTATIC HYPERPLASIA
     Dosage: 0.5 MG, DAILY (1/D)
     Route: 048
     Dates: start: 20080214
  5. DOXEPIN HCL [Concomitant]
     Dosage: 200 MG, EACH EVENING
     Route: 048
     Dates: start: 20080214
  6. DYAZIDE [Concomitant]
     Indication: HYPERTENSION
     Dosage: UNK, DAILY (1/D)
     Route: 048
     Dates: start: 20080214
  7. LISINOPRIL [Concomitant]
     Indication: HYPERTENSION
     Dosage: 20 MG, DAILY (1/D)
     Route: 048
     Dates: start: 20080214
  8. LOPID [Concomitant]
     Indication: HYPERLIPIDAEMIA
     Dosage: 600 MG, 2/D
     Route: 048
     Dates: start: 20080214
  9. PROTONIX [Concomitant]
     Indication: REFLUX OESOPHAGITIS
     Dosage: 40 MG, DAILY (1/D)
     Route: 048
     Dates: start: 20080214
  10. ZANAFLEX [Concomitant]
     Indication: PAIN
     Dosage: UNK, 3/D
     Route: 048
     Dates: start: 20080214
  11. FLOMAX [Concomitant]
     Indication: BENIGN PROSTATIC HYPERPLASIA
     Dosage: 0.4 MG, DAILY (1/D)
  12. VISTARIL [Concomitant]
     Dosage: 25 MG, 2/D
  13. NOVOLOG MIX 70/30 [Concomitant]
     Dosage: 40 U, EACH MORNING
  14. NOVOLOG MIX 70/30 [Concomitant]
     Dosage: 20 U, EACH EVENING
  15. HALDOL [Concomitant]
     Dosage: 10 MG, DAILY (1/D)
     Route: 048
  16. KLONOPIN [Concomitant]
     Dosage: 0.5 MG, EACH EVENING
  17. GABAPENTIN [Concomitant]
     Dosage: 600 MG, 3/D
  18. SINEMET [Concomitant]
     Indication: RESTLESS LEGS SYNDROME
     Dosage: 1428 UNK, DAILY (1/D)
     Route: 048

REACTIONS (4)
  - BLOOD CREATININE INCREASED [None]
  - BLOOD UREA INCREASED [None]
  - PANCREATITIS [None]
  - WEIGHT DECREASED [None]
